FAERS Safety Report 17356397 (Version 3)
Quarter: 2020Q2

REPORT INFORMATION
  Report Type: Report from Study
  Country: AT (occurrence: AT)
  Receive Date: 20200131
  Receipt Date: 20200602
  Transmission Date: 20200713
  Serious: Yes (Hospitalization, Other)
  Sender: FDA-Public Use
  Company Number: AT-SHIRE-AT202003185

PATIENT

DRUGS (1)
  1. TEDUGLUTIDE [Suspect]
     Active Substance: TEDUGLUTIDE
     Indication: SHORT-BOWEL SYNDROME
     Dosage: 0.05 MILLIGRAM/KILOGRAM, 1X/DAY:QD
     Route: 058
     Dates: start: 20191125

REACTIONS (4)
  - Haematochezia [Recovering/Resolving]
  - Pneumonia [Recovering/Resolving]
  - Taste disorder [Not Recovered/Not Resolved]
  - Vascular device infection [Recovering/Resolving]

NARRATIVE: CASE EVENT DATE: 20191125
